FAERS Safety Report 5380164-6 (Version None)
Quarter: 2007Q3

REPORT INFORMATION
  Report Type: 
  Country: None (occurrence: None)
  Receive Date: 20070703
  Receipt Date: 20070620
  Transmission Date: 20080115
  Serious: Yes (Other)
  Sender: FDA-Public Use
  Company Number: 2007-01379

PATIENT
  Age: 70 Year
  Sex: Female

DRUGS (1)
  1. VELCADE [Suspect]
     Indication: MULTIPLE MYELOMA
     Dosage: 1.30 MG/M2
     Dates: end: 20070220

REACTIONS (4)
  - DISEASE PROGRESSION [None]
  - HAEMATOCRIT DECREASED [None]
  - NEUROTOXICITY [None]
  - PARAPROTEINAEMIA [None]
